FAERS Safety Report 4458519-3 (Version None)
Quarter: 2004Q3

REPORT INFORMATION
  Report Type: 
  Country: None (occurrence: None)
  Receive Date: 20040922
  Receipt Date: 20031021
  Transmission Date: 20050211
  Serious: Yes (Hospitalization)
  Sender: FDA-Public Use
  Company Number: US-SHR-03-009233

PATIENT
  Age: 41 Year
  Sex: Male
  Weight: 72.6 kg

DRUGS (4)
  1. BETASERON [Suspect]
     Indication: MULTIPLE SCLEROSIS
     Dosage: 8 MIU, EVERY 2D, SUBCUTANEOUS; EVERY 2D, SUBCUTANEOUS
     Route: 058
     Dates: start: 19980401, end: 20030606
  2. BETASERON [Suspect]
     Indication: MULTIPLE SCLEROSIS
     Dosage: 8 MIU, EVERY 2D, SUBCUTANEOUS; EVERY 2D, SUBCUTANEOUS
     Route: 058
     Dates: start: 20030620
  3. ULTRAM [Concomitant]
  4. ZOLOFT [Concomitant]

REACTIONS (1)
  - INJECTION SITE CELLULITIS [None]
